FAERS Safety Report 20625606 (Version 3)
Quarter: 2025Q3

REPORT INFORMATION
  Report Type: Spontaneous
  Country: US (occurrence: US)
  Receive Date: 20220323
  Receipt Date: 20250714
  Transmission Date: 20251021
  Serious: No
  Sender: ROCHE
  Company Number: US-ROCHE-2770209

PATIENT
  Age: 57 Year
  Sex: Female
  Weight: 81.64 kg

DRUGS (9)
  1. ERIVEDGE [Suspect]
     Active Substance: VISMODEGIB
     Indication: Basal cell carcinoma
     Route: 048
     Dates: start: 20210113
  2. ERIVEDGE [Suspect]
     Active Substance: VISMODEGIB
     Indication: Basal cell naevus syndrome
     Route: 048
     Dates: start: 202101
  3. ERIVEDGE [Suspect]
     Active Substance: VISMODEGIB
     Route: 048
     Dates: start: 202203
  4. ROBAXIN [Concomitant]
     Active Substance: METHOCARBAMOL
  5. GABAPENTIN [Concomitant]
     Active Substance: GABAPENTIN
  6. CLONAZEPAM [Concomitant]
     Active Substance: CLONAZEPAM
  7. FOLIC ACID [Concomitant]
     Active Substance: FOLIC ACID
  8. VITAMIN B12 [Concomitant]
     Active Substance: CYANOCOBALAMIN
  9. ESTRADIOL [Concomitant]
     Active Substance: ESTRADIOL

REACTIONS (6)
  - Muscle spasms [Not Recovered/Not Resolved]
  - Taste disorder [Unknown]
  - Alopecia [Not Recovered/Not Resolved]
  - Dry skin [Unknown]
  - Dysgeusia [Unknown]
  - Arthropathy [Not Recovered/Not Resolved]

NARRATIVE: CASE EVENT DATE: 20210113
